FAERS Safety Report 6869808-7 (Version None)
Quarter: 2010Q3

REPORT INFORMATION
  Report Type: 
  Country: None (occurrence: None)
  Receive Date: 20100722
  Receipt Date: 20080823
  Transmission Date: 20110219
  Serious: No
  Sender: FDA-Public Use
  Company Number: US-PFIZER INC-2008072110

PATIENT
  Sex: Female
  Weight: 70 kg

DRUGS (13)
  1. CHANTIX [Suspect]
     Indication: SMOKING CESSATION THERAPY
     Route: 048
  2. ACETYLSALICYLIC ACID [Concomitant]
  3. METFORMIN [Concomitant]
  4. LEVOTHYROXINE SODIUM [Concomitant]
  5. CITALOPRAM [Concomitant]
  6. PROVIGIL [Concomitant]
  7. LASIX [Concomitant]
  8. OBETROL [Concomitant]
  9. SIMVASTATIN [Concomitant]
  10. BENAZEPRIL HYDROCHLORIDE [Concomitant]
  11. VITAMIN C [Concomitant]
  12. VITAMIN D [Concomitant]
  13. VITAMIN E [Concomitant]

REACTIONS (7)
  - ANGER [None]
  - DIZZINESS [None]
  - EATING DISORDER [None]
  - INAPPROPRIATE SCHEDULE OF DRUG ADMINISTRATION [None]
  - MALAISE [None]
  - TREMOR [None]
  - WEIGHT DECREASED [None]
